FAERS Safety Report 24819866 (Version 2)
Quarter: 2025Q1

REPORT INFORMATION
  Report Type: Spontaneous
  Country: US (occurrence: US)
  Receive Date: 20250108
  Receipt Date: 20250110
  Transmission Date: 20250408
  Serious: Yes (Other)
  Sender: DR REDDYS
  Company Number: US-DRL-USA-USA/2025/01/000280

PATIENT
  Age: 37 Year
  Sex: Male

DRUGS (2)
  1. SEVELAMER [Suspect]
     Active Substance: SEVELAMER
     Indication: Acute kidney injury
  2. HEPARIN [Suspect]
     Active Substance: HEPARIN SODIUM
     Indication: Hypercoagulation

REACTIONS (3)
  - Melaena [Unknown]
  - Pneumoperitoneum [Unknown]
  - Large intestinal ulcer [Unknown]
